FAERS Safety Report 9291640 (Version 1)
Quarter: 2013Q2

REPORT INFORMATION
  Report Type: Report from Study
  Country: US (occurrence: US)
  Receive Date: 20130515
  Receipt Date: 20130515
  Transmission Date: 20140414
  Serious: Yes (Hospitalization)
  Sender: FDA-Public Use
  Company Number: US-US-EMD SERONO, INC.-7210729

PATIENT
  Age: 65 Year
  Sex: Female

DRUGS (2)
  1. REBIF [Suspect]
     Indication: MULTIPLE SCLEROSIS
     Route: 058
     Dates: start: 20030502, end: 20130315
  2. REBIF [Suspect]
     Route: 058
     Dates: start: 20130315

REACTIONS (6)
  - Open fracture [Recovering/Resolving]
  - Fall [Recovering/Resolving]
  - White blood cell count abnormal [Unknown]
  - Musculoskeletal disorder [Not Recovered/Not Resolved]
  - Impaired healing [Recovering/Resolving]
  - Influenza like illness [Recovering/Resolving]
